FAERS Safety Report 25678943 (Version 1)
Quarter: 2025Q3

REPORT INFORMATION
  Report Type: Report from Study
  Country: IN (occurrence: IN)
  Receive Date: 20250814
  Receipt Date: 20250814
  Transmission Date: 20251020
  Serious: Yes (Other)
  Sender: ROCHE
  Company Number: IN-ROCHE-10000362360

PATIENT
  Age: 58 Year
  Sex: Female

DRUGS (1)
  1. CELLCEPT [Suspect]
     Active Substance: MYCOPHENOLATE MOFETIL
     Indication: Systemic lupus erythematosus
     Route: 048

REACTIONS (5)
  - Cutaneous vasculitis [Unknown]
  - Hypertension [Unknown]
  - Hypothyroidism [Unknown]
  - Azotaemia [Unknown]
  - Proteinuria [Unknown]
